FAERS Safety Report 7606348-1 (Version None)
Quarter: 2011Q3

REPORT INFORMATION
  Report Type: 
  Country: None (occurrence: None)
  Receive Date: 20110705
  Receipt Date: 20110628
  Transmission Date: 20111222
  Serious: Yes (Hospitalization)
  Sender: FDA-Public Use
  Company Number: 2011SP030155

PATIENT
  Age: 50 Year
  Sex: Female

DRUGS (6)
  1. KLONOPIN [Concomitant]
  2. ABILIFY [Concomitant]
  3. SAPHRIS [Suspect]
     Indication: BIPOLAR DISORDER
     Dosage: 10 MG, BID, SL
     Route: 060
  4. PROVIGIL [Concomitant]
  5. CYMBALTA [Concomitant]
  6. LORAZEPAM [Concomitant]

REACTIONS (2)
  - MOOD ALTERED [None]
  - SUICIDAL BEHAVIOUR [None]
